FAERS Safety Report 4405840-0 (Version None)
Quarter: 2004Q3

REPORT INFORMATION
  Report Type: 
  Country: None (occurrence: None)
  Receive Date: 20040723
  Receipt Date: 20040112
  Transmission Date: 20050211
  Serious: No
  Sender: FDA-Public Use
  Company Number: US-GLAXOSMITHKLINE-A0492591A

PATIENT
  Age: 76 Year
  Sex: Male

DRUGS (4)
  1. AVANDIA [Suspect]
     Dosage: 8MG PER DAY
     Route: 065
     Dates: end: 20040112
  2. GLUCOVANCE [Concomitant]
  3. ZIAC [Concomitant]
  4. AVALIDE [Concomitant]

REACTIONS (1)
  - DYSPNOEA [None]
